FAERS Safety Report 17975741 (Version 1)
Quarter: 2020Q3

REPORT INFORMATION
  Report Type: Spontaneous
  Country: US (occurrence: US)
  Receive Date: 20200702
  Receipt Date: 20200702
  Transmission Date: 20201103
  Serious: Yes (Hospitalization, Other)
  Sender: FDA-Public Use
  Company Number: US-INDIVIOR EUROPE LIMITED-INDV-125410-2020

PATIENT
  Age: 63 Year
  Sex: Female

DRUGS (4)
  1. SUBOXONE [Suspect]
     Active Substance: BUPRENORPHINE HYDROCHLORIDE\NALOXONE HYDROCHLORIDE
     Dosage: INCREASED UPTO THREE FILMS, UNK
     Route: 065
  2. SUBOXONE [Suspect]
     Active Substance: BUPRENORPHINE HYDROCHLORIDE\NALOXONE HYDROCHLORIDE
     Indication: PAIN
     Dosage: TAKING ONE AND HALF FILMS, UNK
     Route: 065
     Dates: start: 2015
  3. SUBOXONE [Suspect]
     Active Substance: BUPRENORPHINE HYDROCHLORIDE\NALOXONE HYDROCHLORIDE
     Dosage: NOW DOWN TO TWO FILMS, UNK
     Route: 065
  4. SUBOXONE [Suspect]
     Active Substance: BUPRENORPHINE HYDROCHLORIDE\NALOXONE HYDROCHLORIDE
     Dosage: WENT BACK TO SUBOXONE, UNK
     Route: 065

REACTIONS (8)
  - Wrong technique in product usage process [Unknown]
  - Fall [Recovered/Resolved]
  - Off label use [Not Recovered/Not Resolved]
  - Skin ulcer [Unknown]
  - Alopecia [Unknown]
  - Upper limb fracture [Unknown]
  - Intentional underdose [Unknown]
  - Intentional product use issue [Unknown]
